FAERS Safety Report 19483887 (Version 2)
Quarter: 2021Q3

REPORT INFORMATION
  Report Type: Spontaneous
  Country: US (occurrence: US)
  Receive Date: 20210701
  Receipt Date: 20210902
  Transmission Date: 20211014
  Serious: Yes (Life-Threatening, Hospitalization)
  Sender: FDA-Public Use
  Company Number: US-TEVA-2021-US-1927395

PATIENT
  Age: 30 Year
  Sex: Male

DRUGS (20)
  1. VINCRISTINE [Suspect]
     Active Substance: VINCRISTINE
     Dosage: RECEIVED 1.5NG/M2/DOSE ON DAY 2; CONSOLIDATION CHEMOTHERAPY AS PER ALL R3 PROTOCOL
     Route: 065
  2. METHOTREXATE. [Suspect]
     Active Substance: METHOTREXATE
     Indication: B PRECURSOR TYPE ACUTE LEUKAEMIA
     Dosage: RECEIVED ON DAY 8 AND 29; CHILDREN^S ONCOLOGY GROUP (COG) STUDY AALL1131 PROTOCOL
     Route: 037
     Dates: start: 201311
  3. DEXAMETHASONE. [Suspect]
     Active Substance: DEXAMETHASONE
     Dosage: 6 MG/M2 DAILY; RECEIVED ON DAY 1?5CONSOLIDATION CHEMOTHERAPY AS PER ALL R3 PROTOCOL
     Route: 065
  4. ALLOPURINOL. [Suspect]
     Active Substance: ALLOPURINOL
     Indication: B PRECURSOR TYPE ACUTE LEUKAEMIA
     Dosage: 300 MILLIGRAM DAILY; CHILDREN^S ONCOLOGY GROUP (COG) STUDY AALL1131 PROTOCOL
     Route: 065
     Dates: start: 201311
  5. DAUNORUBICIN [Suspect]
     Active Substance: DAUNORUBICIN
     Indication: B PRECURSOR TYPE ACUTE LEUKAEMIA
     Dosage: RECEIVED ON DAY 1, 8, 15, AND 22; CHILDREN^S ONCOLOGY GROUP (COG) STUDY AALL1131 PROTOCOL
     Route: 042
     Dates: start: 201311
  6. ARA?C [Suspect]
     Active Substance: CYTARABINE
     Indication: B PRECURSOR TYPE ACUTE LEUKAEMIA
     Dosage: RECEIVED ON DAY 1; CHILDREN^S ONCOLOGY GROUP (COG) STUDY AALL1131 PROTOCOL
     Route: 037
     Dates: start: 201311
  7. PEGYLATED ASPARAGINASE [Suspect]
     Active Substance: PEGASPARGASE
     Indication: B PRECURSOR TYPE ACUTE LEUKAEMIA
     Dosage: RECEIVED 2500IU/M2 ON DAY 4; CHILDREN^S ONCOLOGY GROUP (COG) STUDY AALL1131 PROTOCOL
     Route: 065
     Dates: start: 201311
  8. METHOTREXATE. [Suspect]
     Active Substance: METHOTREXATE
     Dosage: RECEIVED ON DAY 1; CONSOLIDATION CHEMOTHERAPY AS PER ALL R3 PROTOCOL
     Route: 037
  9. PEGYLATED ASPARAGINASE [Suspect]
     Active Substance: PEGASPARGASE
     Dosage: RECEIVED 2500U/M2/DOSE ON DAY 9; CONSOLIDATION CHEMOTHERAPY AS PER ALL R3 PROTOCOL
     Route: 065
  10. LEUCOVORIN. [Suspect]
     Active Substance: LEUCOVORIN
     Indication: B PRECURSOR TYPE ACUTE LEUKAEMIA
     Dosage: RECEIVED AS RESCUE THERAPY OF CONSOLIDATION CHEMOTHERAPY AS PER ALL R3 PROTOCOL
     Route: 065
  11. CYCLOPHOSPHAMIDE. [Suspect]
     Active Substance: CYCLOPHOSPHAMIDE
     Indication: B PRECURSOR TYPE ACUTE LEUKAEMIA
     Dosage: RECEIVED 440MG/M2/DOSE ON DAY 15?19; CONSOLIDATION CHEMOTHERAPY AS PER ALL R3 PROTOCOL
     Route: 065
  12. METHOTREXATE. [Suspect]
     Active Substance: METHOTREXATE
     Dosage: RECEIVED ON DAY 1 AND 8; REINDUCTION CHEMOTHERAPY ALL R3 PROTOCOL
     Route: 037
  13. MITOXANTRONE [Suspect]
     Active Substance: MITOXANTRONE HYDROCHLORIDE
     Indication: B PRECURSOR TYPE ACUTE LEUKAEMIA
     Dosage: 10MG/M2/DOSE DAY RECEIVED ON DAY 1?2; REINDUCTION CHEMOTHERAPY ALL R3 PROTOCOL
     Route: 065
  14. VINCRISTINE [Suspect]
     Active Substance: VINCRISTINE
     Dosage: RECEIVED 1.5MG/M2/DOSE RECEIVED ON DAY 3, THEN WEEKLY; REINDUCTION CHEMOTHERAPY ALL R3 PROTOCOL
     Route: 065
  15. ETOPOSIDE. [Suspect]
     Active Substance: ETOPOSIDE
     Indication: B PRECURSOR TYPE ACUTE LEUKAEMIA
     Dosage: RECEIVED 100MG/M2/DOSE ON DAY 15?19; CONSOLIDATION CHEMOTHERAPY AS PER ALL R3 PROTOCOL
     Route: 065
  16. METHOTREXATE. [Suspect]
     Active Substance: METHOTREXATE
     Dosage: 1000MG/M2/DOSE RECEIVED ON DAY 8; CONSOLIDATION CHEMOTHERAPY AS PER ALL R3 PROTOCOL
     Route: 065
  17. PEGYLATED ASPARAGINASE [Suspect]
     Active Substance: PEGASPARGASE
     Dosage: RECEIVED 2500U/M2 ON DAY 3 AND 18; REINDUCTION CHEMOTHERAPY ALL R3 PROTOCOL
     Route: 065
  18. PREDNISONE. [Suspect]
     Active Substance: PREDNISONE
     Indication: B PRECURSOR TYPE ACUTE LEUKAEMIA
     Dosage: 60 MG/M2 DAILY; RECEIVED IN TWO DIVIDED DOSES ON DAY 1?28; CHILDREN^S ONCOLOGY GROUP (COG) STUDY AAL
     Route: 065
     Dates: start: 201311
  19. VINCRISTINE [Suspect]
     Active Substance: VINCRISTINE
     Indication: B PRECURSOR TYPE ACUTE LEUKAEMIA
     Dosage: RECEIVED ON DAY 1, 8, 15, AND 22; CHILDREN^S ONCOLOGY GROUP (COG) STUDY AALL1131 PROTOCOL
     Route: 042
     Dates: start: 201311
  20. DEXAMETHASONE. [Suspect]
     Active Substance: DEXAMETHASONE
     Indication: B PRECURSOR TYPE ACUTE LEUKAEMIA
     Dosage: 20 MG/M2 DAILY; RECEIVED ON DAY 1?5 AND 15?19; REINDUCTION CHEMOTHERAPY ALL R3 PROTOCOL
     Route: 065

REACTIONS (4)
  - Sepsis [Unknown]
  - Pneumonia necrotising [Unknown]
  - Multiple organ dysfunction syndrome [Unknown]
  - Pleural effusion [Unknown]
